FAERS Safety Report 21377684 (Version 1)
Quarter: 2022Q3

REPORT INFORMATION
  Report Type: Other
  Country: None (occurrence: US)
  Receive Date: 20220926
  Receipt Date: 20220926
  Transmission Date: 20221027
  Serious: Yes (Death)
  Sender: FDA-Public Use
  Company Number: US-B.Braun Medical Inc.-2133196

PATIENT
  Age: 70 Year

DRUGS (1)
  1. POTASSIUM CHLORIDE [Suspect]
     Active Substance: POTASSIUM CHLORIDE

REACTIONS (3)
  - Cardiac arrest [Fatal]
  - Medication error [Fatal]
  - Off label use [Fatal]
